FAERS Safety Report 6938186-7 (Version None)
Quarter: 2010Q3

REPORT INFORMATION
  Report Type: 
  Country: None (occurrence: None)
  Receive Date: 20100824
  Receipt Date: 20100816
  Transmission Date: 20110219
  Serious: Yes (Hospitalization)
  Sender: FDA-Public Use
  Company Number: IE-WYE-G06548310

PATIENT
  Sex: Male

DRUGS (7)
  1. EFFEXOR [Suspect]
     Dosage: UNKNOWN
  2. RIVOTRIL [Concomitant]
     Dosage: UNKNOWN
  3. PHENYTOIN SODIUM CAP [Concomitant]
     Dosage: UNKNOWN
  4. KEPPRA [Concomitant]
     Dosage: UNKNOWN
  5. CIPRAMIL [Concomitant]
     Dosage: UNKNOWN
  6. NEURONTIN [Concomitant]
     Dosage: UNKNOWN
  7. LAMITOL [Concomitant]
     Dosage: UNKNOWN

REACTIONS (6)
  - CONDITION AGGRAVATED [None]
  - DEPRESSION [None]
  - EJACULATION DISORDER [None]
  - HYPERSOMNIA [None]
  - INSOMNIA [None]
  - MENTAL IMPAIRMENT [None]
